FAERS Safety Report 18109380 (Version 1)
Quarter: 2020Q3

REPORT INFORMATION
  Report Type: Spontaneous
  Country: US (occurrence: US)
  Receive Date: 20200803
  Receipt Date: 20200803
  Transmission Date: 20201103
  Serious: Yes (Other)
  Sender: FDA-Public Use
  Company Number: None

PATIENT
  Sex: Female

DRUGS (1)
  1. METFORMIN [Suspect]
     Active Substance: METFORMIN HYDROCHLORIDE
     Indication: DIABETES MELLITUS
     Route: 048
     Dates: start: 20200328, end: 20200618

REACTIONS (5)
  - Discomfort [None]
  - Recalled product [None]
  - Recalled product administered [None]
  - Adverse drug reaction [None]
  - Product contamination [None]

NARRATIVE: CASE EVENT DATE: 20200510
